FAERS Safety Report 4870205-4 (Version None)
Quarter: 2005Q4

REPORT INFORMATION
  Report Type: 
  Country: None (occurrence: None)
  Receive Date: 20051228
  Receipt Date: 20051220
  Transmission Date: 20060501
  Serious: Yes (Other)
  Sender: FDA-Public Use
  Company Number: 200511141BVD

PATIENT
  Age: 81 Year
  Sex: Female
  Weight: 80 kg

DRUGS (5)
  1. AVELOX [Suspect]
     Indication: SOFT TISSUE INFECTION
     Dosage: 400 MG, TOTAL DAILY, INTRAVENOUS
     Route: 042
     Dates: start: 20050820, end: 20050905
  2. ENOXAPARIN [Concomitant]
  3. PANTOPRAZOL [Concomitant]
  4. ACC [Concomitant]
  5. MADOPAR [Concomitant]

REACTIONS (3)
  - CLOSTRIDIUM COLITIS [None]
  - ELECTROLYTE IMBALANCE [None]
  - RENAL FAILURE ACUTE [None]
